FAERS Safety Report 8480834-7 (Version None)
Quarter: 2012Q3

REPORT INFORMATION
  Report Type: 
  Country: None (occurrence: None)
  Receive Date: 20120702
  Receipt Date: 20120622
  Transmission Date: 20120928
  Serious: Yes (Hospitalization)
  Sender: FDA-Public Use
  Company Number: US-BAYER-2012-042374

PATIENT
  Age: 39 Year
  Sex: Female
  Weight: 62.132 kg

DRUGS (10)
  1. DROSPIRENONE AND ETHINYL ESTRADIOL [Suspect]
     Indication: PREMENSTRUAL SYNDROME
  2. FLUTICASONE PROPIONATE [Concomitant]
     Indication: NASAL CONGESTION
     Dosage: 50MCG
     Dates: start: 20050101
  3. NSAID'S [Concomitant]
     Dosage: UNK
     Dates: start: 20020101, end: 20120101
  4. YAZ [Suspect]
     Indication: CONTRACEPTION
     Dosage: UNK
     Dates: start: 20080908, end: 20100621
  5. VICODIN [Concomitant]
  6. YAZ [Suspect]
     Indication: PREMENSTRUAL SYNDROME
  7. DROSPIRENONE AND ETHINYL ESTRADIOL [Suspect]
     Indication: CONTRACEPTION
     Dosage: UNK
     Dates: start: 20100616, end: 20100720
  8. ONE-A-DAY [VIT C,B12,D2,B3,B6,RETINOL,B2,B1 MONONITR] [Concomitant]
     Dosage: 1 PILL DAILY
     Dates: start: 20100701
  9. PERCOCET [Concomitant]
     Dosage: 5/325MG
  10. KEFLEX [Concomitant]
     Dosage: 500 MG, UNK
     Route: 048

REACTIONS (5)
  - PAIN IN EXTREMITY [None]
  - LIMB DEFORMITY [None]
  - DEEP VEIN THROMBOSIS [None]
  - DYSPNOEA [None]
  - ARTHRALGIA [None]
